FAERS Safety Report 20354203 (Version 4)
Quarter: 2022Q3

REPORT INFORMATION
  Report Type: Report from Study
  Country: US (occurrence: US)
  Receive Date: 20220120
  Receipt Date: 20220627
  Transmission Date: 20221026
  Serious: No
  Sender: FDA-Public Use
  Company Number: US-NOVARTISTESTPH-NVSC2022US011072

PATIENT
  Sex: Male

DRUGS (1)
  1. ZOLGENSMA [Suspect]
     Active Substance: ONASEMNOGENE ABEPARVOVEC-XIOI
     Indication: Spinal muscular atrophy
     Dosage: UNK UNK, ONCE/SINGLE
     Route: 042
     Dates: start: 20220112, end: 20220112

REACTIONS (7)
  - Platelet count abnormal [Unknown]
  - Hepatic enzyme abnormal [Unknown]
  - Irritability [Unknown]
  - Teething [Unknown]
  - Decreased appetite [Unknown]
  - Sleep disorder [Unknown]
  - Pyrexia [Unknown]
